FAERS Safety Report 16333493 (Version 3)
Quarter: 2021Q4

REPORT INFORMATION
  Report Type: Spontaneous
  Country: US (occurrence: US)
  Receive Date: 20190520
  Receipt Date: 20211217
  Transmission Date: 20220303
  Serious: Yes (Hospitalization, Other)
  Sender: FDA-Public Use
  Company Number: US-GILEAD-2019-0408026

PATIENT
  Sex: Male
  Weight: 89.796 kg

DRUGS (46)
  1. ATRIPLA [Suspect]
     Active Substance: EFAVIRENZ\EMTRICITABINE\TENOFOVIR DISOPROXIL FUMARATE
     Indication: HIV infection
     Dosage: 1 TAB/DAY
     Route: 048
     Dates: start: 200711, end: 20110101
  2. TRUVADA [Suspect]
     Active Substance: EMTRICITABINE\TENOFOVIR DISOPROXIL FUMARATE
     Indication: HIV infection
     Dosage: UNK
     Route: 048
     Dates: start: 20110108, end: 201307
  3. BIKTARVY [Concomitant]
     Active Substance: BICTEGRAVIR SODIUM\EMTRICITABINE\TENOFOVIR ALAFENAMIDE FUMARATE
  4. LISINOPRIL [Concomitant]
     Active Substance: LISINOPRIL
  5. DULOXETINE [Concomitant]
     Active Substance: DULOXETINE
  6. RESTORIL [Concomitant]
     Active Substance: TEMAZEPAM
  7. EMTRIVA [Concomitant]
     Active Substance: EMTRICITABINE
  8. EPZICOM [Concomitant]
     Active Substance: ABACAVIR SULFATE\LAMIVUDINE
  9. INTELENCE [Concomitant]
     Active Substance: ETRAVIRINE
  10. NORVIR [Concomitant]
     Active Substance: RITONAVIR
  11. REYATAZ [Concomitant]
     Active Substance: ATAZANAVIR SULFATE
  12. TIVICAY [Concomitant]
     Active Substance: DOLUTEGRAVIR SODIUM
  13. TRIUMEQ [Concomitant]
     Active Substance: ABACAVIR SULFATE\DOLUTEGRAVIR SODIUM\LAMIVUDINE
  14. ZIAGEN [Concomitant]
     Active Substance: ABACAVIR SULFATE
  15. ADDERALL [Concomitant]
     Active Substance: AMPHETAMINE ASPARTATE\AMPHETAMINE SULFATE\DEXTROAMPHETAMINE SACCHARATE\DEXTROAMPHETAMINE SULFATE
  16. ALDACTONE [Concomitant]
     Active Substance: SPIRONOLACTONE
  17. AMOXICILLIN [Concomitant]
     Active Substance: AMOXICILLIN
  18. AMPHETAMINE [Concomitant]
     Active Substance: AMPHETAMINE
  19. ASPIRIN [Concomitant]
     Active Substance: ASPIRIN
  20. ATORVASTATIN [Concomitant]
     Active Substance: ATORVASTATIN
  21. CRESTOR [Concomitant]
     Active Substance: ROSUVASTATIN CALCIUM
  22. CYMBALTA [Concomitant]
     Active Substance: DULOXETINE HYDROCHLORIDE
  23. ETRAVIRINE [Concomitant]
     Active Substance: ETRAVIRINE
  24. HYDROCODONE BITARTRATE AND ACETAMINOPHEN [Concomitant]
     Active Substance: ACETAMINOPHEN\HYDROCODONE BITARTRATE
  25. HYDROXYZINE HYDROCHLORIDE [Concomitant]
     Active Substance: HYDROXYZINE HYDROCHLORIDE
  26. LATUDA [Concomitant]
     Active Substance: LURASIDONE HYDROCHLORIDE
  27. LOSARTAN [Concomitant]
     Active Substance: LOSARTAN
  28. LOVAZA [Concomitant]
     Active Substance: OMEGA-3-ACID ETHYL ESTERS
  29. MELOXICAM [Concomitant]
     Active Substance: MELOXICAM
  30. MYTESI [Concomitant]
     Active Substance: CROFELEMER
  31. OXYCODONE AND ACETAMINOPHEN [Concomitant]
     Active Substance: ACETAMINOPHEN\OXYCODONE HYDROCHLORIDE
  32. PRILOSEC [Concomitant]
     Active Substance: OMEPRAZOLE MAGNESIUM
  33. REPATHA [Concomitant]
     Active Substance: EVOLOCUMAB
  34. SAPHRIS [Concomitant]
     Active Substance: ASENAPINE MALEATE
  35. STRATTERA [Concomitant]
     Active Substance: ATOMOXETINE HYDROCHLORIDE
  36. SULFAMETHOXAZOLE\TRIMETHOPRIM [Concomitant]
     Active Substance: SULFAMETHOXAZOLE\TRIMETHOPRIM
  37. TRAZODONE [Concomitant]
     Active Substance: TRAZODONE HYDROCHLORIDE
  38. VALSARTAN [Concomitant]
     Active Substance: VALSARTAN
  39. VENLAFAXINE [Concomitant]
     Active Substance: VENLAFAXINE HYDROCHLORIDE
  40. VITAMIN D NOS [Concomitant]
     Active Substance: VITAMIN D NOS
  41. WARFARIN SODIUM [Concomitant]
     Active Substance: WARFARIN SODIUM
  42. ZANTAC [Concomitant]
     Active Substance: RANITIDINE HYDROCHLORIDE
  43. ZETIA [Concomitant]
     Active Substance: EZETIMIBE
  44. ZOLPIDEM [Concomitant]
     Active Substance: ZOLPIDEM TARTRATE
  45. LIPITOR [Concomitant]
     Active Substance: ATORVASTATIN CALCIUM
  46. REPATHA [Concomitant]
     Active Substance: EVOLOCUMAB

REACTIONS (12)
  - Osteopenia [Not Recovered/Not Resolved]
  - Chronic kidney disease [Not Recovered/Not Resolved]
  - Acute kidney injury [Not Recovered/Not Resolved]
  - Emotional distress [Not Recovered/Not Resolved]
  - Anhedonia [Not Recovered/Not Resolved]
  - Economic problem [Not Recovered/Not Resolved]
  - Depression [Not Recovered/Not Resolved]
  - Abnormal dreams [Unknown]
  - Paranoia [Unknown]
  - Delusion [Unknown]
  - Anxiety [Not Recovered/Not Resolved]
  - Pain [Not Recovered/Not Resolved]

NARRATIVE: CASE EVENT DATE: 20110101
